FAERS Safety Report 26082877 (Version 1)
Quarter: 2025Q4

REPORT INFORMATION
  Report Type: Report from Study
  Country: US (occurrence: US)
  Receive Date: 20251124
  Receipt Date: 20251124
  Transmission Date: 20260117
  Serious: Yes (Hospitalization)
  Sender: ABBVIE
  Company Number: US-ABBVIE-6558148

PATIENT
  Age: 71 Year
  Sex: Male

DRUGS (1)
  1. SKYRIZI [Suspect]
     Active Substance: RISANKIZUMAB-RZAA
     Indication: Crohn^s disease
     Route: 042
     Dates: start: 20251104, end: 20251110

REACTIONS (1)
  - Abscess intestinal [Not Recovered/Not Resolved]

NARRATIVE: CASE EVENT DATE: 20251101
